FAERS Safety Report 5450178-6 (Version None)
Quarter: 2007Q3

REPORT INFORMATION
  Report Type: 
  Country: None (occurrence: None)
  Receive Date: 20070912
  Receipt Date: 20070910
  Transmission Date: 20080115
  Serious: Yes (Death, Hospitalization, Other)
  Sender: FDA-Public Use
  Company Number: PHNU2007DE02207

PATIENT
  Age: 70 Year
  Sex: Female
  Weight: 86 kg

DRUGS (1)
  1. ZOMETA [Suspect]
     Indication: METASTASES TO BONE
     Dosage: 4MG/5ML PER MONTH
     Route: 042
     Dates: start: 20070122, end: 20070223

REACTIONS (24)
  - ABDOMINAL ABSCESS [None]
  - ABDOMINAL PAIN [None]
  - ABSCESS DRAINAGE [None]
  - AGRANULOCYTOSIS [None]
  - C-REACTIVE PROTEIN INCREASED [None]
  - CHILLS [None]
  - CHOLECYSTECTOMY [None]
  - COMPUTERISED TOMOGRAM ABNORMAL [None]
  - ESCHERICHIA INFECTION [None]
  - GASTROINTESTINAL HYPOMOTILITY [None]
  - HYPOKALAEMIA [None]
  - LAPAROTOMY [None]
  - NORMOCHROMIC NORMOCYTIC ANAEMIA [None]
  - PANCREATIC PSEUDOCYST [None]
  - PANCREATITIS NECROTISING [None]
  - PERITONITIS [None]
  - PNEUMONIA [None]
  - PSEUDOCYST [None]
  - RENAL FAILURE CHRONIC [None]
  - RESPIRATORY FAILURE [None]
  - SHOCK [None]
  - TACHYCARDIA [None]
  - TACHYPNOEA [None]
  - URINARY TRACT INFECTION [None]
